FAERS Safety Report 9581154 (Version 1)
Quarter: 2013Q4

REPORT INFORMATION
  Report Type: Spontaneous
  Country: JP (occurrence: JP)
  Receive Date: 20131002
  Receipt Date: 20131002
  Transmission Date: 20140711
  Serious: Yes (Other)
  Sender: FDA-Public Use
  Company Number: JP-PFIZER INC-2013277026

PATIENT
  Sex: 0

DRUGS (1)
  1. AZULFIDINE EN [Suspect]
     Indication: RHEUMATOID ARTHRITIS
     Dosage: 250 MG, 1X/DAY
     Route: 048

REACTIONS (5)
  - Pleural effusion [Recovered/Resolved]
  - Altered state of consciousness [Recovered/Resolved]
  - Feeling abnormal [Recovered/Resolved]
  - Headache [Recovered/Resolved]
  - Wrong technique in drug usage process [Unknown]
